FAERS Safety Report 25208009 (Version 1)
Quarter: 2025Q2

REPORT INFORMATION
  Report Type: Report from Study
  Country: NZ (occurrence: NZ)
  Receive Date: 20250417
  Receipt Date: 20250417
  Transmission Date: 20250717
  Serious: Yes (Hospitalization)
  Sender: CUMBERLAND PHARMACEUTICALS INC.
  Company Number: NZ-Cumberland Pharmaceuticals Inc.-2175044

PATIENT
  Age: 50 Year
  Sex: Female

DRUGS (1)
  1. KRISTALOSE [Suspect]
     Active Substance: LACTULOSE
     Indication: Constipation

REACTIONS (2)
  - Abdominal rigidity [Recovered/Resolved]
  - Pneumatosis intestinalis [Recovered/Resolved]
